FAERS Safety Report 11092760 (Version 2)
Quarter: 2015Q2

REPORT INFORMATION
  Report Type: Spontaneous
  Country: US (occurrence: None)
  Receive Date: 20150504
  Receipt Date: 20150608
  Transmission Date: 20150821
  Serious: Yes (Death, Other)
  Sender: FDA-Public Use
  Company Number: SP09350

PATIENT
  Age: 70 Year
  Sex: Male

DRUGS (1)
  1. MOVIPREP [Suspect]
     Active Substance: ASCORBIC ACID\POLYETHYLENE GLYCOL 3350\POTASSIUM CHLORIDE\SODIUM ASCORBATE\SODIUM CHLORIDE\SODIUM SULFATE
     Indication: BOWEL PREPARATION
     Route: 048
     Dates: start: 20150412, end: 20150413

REACTIONS (5)
  - Vomiting [None]
  - Cardiac arrest [None]
  - Pruritus generalised [None]
  - Dyspnoea [None]
  - Hypersensitivity [None]

NARRATIVE: CASE EVENT DATE: 20150413
